FAERS Safety Report 7132592-6 (Version None)
Quarter: 2010Q4

REPORT INFORMATION
  Report Type: 
  Country: None (occurrence: None)
  Receive Date: 20101130
  Receipt Date: 20101130
  Transmission Date: 20110411
  Serious: Yes (Other)
  Sender: FDA-Public Use
  Company Number: None

PATIENT
  Age: 52 Year
  Sex: Male
  Weight: 217.7266 kg

DRUGS (2)
  1. OXYCONTIN [Suspect]
     Indication: BACK PAIN
     Dosage: 40 MG BID PO
     Route: 048
     Dates: start: 20101023, end: 20101105
  2. OXYCONTIN [Suspect]
     Indication: NEURALGIA
     Dosage: 40 MG BID PO
     Route: 048
     Dates: start: 20101023, end: 20101105

REACTIONS (1)
  - WITHDRAWAL SYNDROME [None]
